FAERS Safety Report 18253651 (Version 2)
Quarter: 2020Q3

REPORT INFORMATION
  Report Type: Spontaneous
  Country: CN (occurrence: CN)
  Receive Date: 20200910
  Receipt Date: 20200911
  Transmission Date: 20201103
  Serious: No
  Sender: FDA-Public Use
  Company Number: CN-009507513-2009CHN002550

PATIENT
  Age: 74 Year
  Sex: Female
  Weight: 70 kg

DRUGS (6)
  1. SODIUM CHLORIDE. [Concomitant]
     Active Substance: SODIUM CHLORIDE
     Dosage: 100 ML, QD
     Route: 041
     Dates: start: 20200805, end: 20200824
  2. AMIKACIN SULFATE. [Concomitant]
     Active Substance: AMIKACIN SULFATE
     Indication: ANTI-INFECTIVE THERAPY
     Dosage: 0.3 GRAM, QD
     Route: 041
     Dates: start: 20200805, end: 20200807
  3. PIRACETAM AND SODIUM CHLORIDE INJECTION [Concomitant]
     Indication: CEREBRAL INFARCTION
     Dosage: 20 G, QD
     Route: 041
     Dates: start: 20200806, end: 20200807
  4. SODIUM CHLORIDE. [Concomitant]
     Active Substance: SODIUM CHLORIDE
     Dosage: 250 ML. QD
     Route: 041
     Dates: start: 20200807, end: 20200825
  5. TIENAM [Suspect]
     Active Substance: CILASTATIN SODIUM\IMIPENEM
     Indication: URINARY TRACT INFECTION BACTERIAL
     Dosage: 1 GRAM, BID
     Route: 041
     Dates: start: 20200807, end: 20200813
  6. BETAHISTINE HYDROCHLORIDE [Concomitant]
     Active Substance: BETAHISTINE HYDROCHLORIDE
     Indication: CEREBRAL INFARCTION
     Dosage: 40 MG, QD
     Route: 041
     Dates: start: 20200805, end: 20200824

REACTIONS (3)
  - Epigastric discomfort [Recovered/Resolved]
  - Chest discomfort [Recovered/Resolved]
  - Nausea [Recovered/Resolved]

NARRATIVE: CASE EVENT DATE: 20200813
